FAERS Safety Report 9116583 (Version 1)
Quarter: 2013Q1

REPORT INFORMATION
  Report Type: Report from Study
  Country: US (occurrence: US)
  Receive Date: 20130225
  Receipt Date: 20130225
  Transmission Date: 20140127
  Serious: Yes (Hospitalization)
  Sender: FDA-Public Use
  Company Number: US-ACTELION-A-US2013-77859

PATIENT
  Age: 52 Year
  Sex: Female

DRUGS (4)
  1. TRACLEER [Suspect]
     Indication: PULMONARY ARTERIAL HYPERTENSION
     Dosage: UNK
     Route: 048
  2. VENTAVIS [Suspect]
     Indication: PULMONARY ARTERIAL HYPERTENSION
     Dosage: UNK
     Route: 055
  3. SILDENAFIL [Concomitant]
  4. DIURETIC [Concomitant]

REACTIONS (6)
  - Lower limb fracture [Unknown]
  - Compression fracture [Unknown]
  - Open fracture [Unknown]
  - Skin graft [Unknown]
  - Wound [Unknown]
  - Road traffic accident [Unknown]
